FAERS Safety Report 17881793 (Version 1)
Quarter: 2020Q2

REPORT INFORMATION
  Report Type: Spontaneous
  Country: US (occurrence: US)
  Receive Date: 20200610
  Receipt Date: 20200610
  Transmission Date: 20200714
  Serious: Yes (Hospitalization, Other)
  Sender: FDA-Public Use
  Company Number: US-LANNETT COMPANY, INC.-US-2020LAN000138

PATIENT
  Sex: Male

DRUGS (1)
  1. CODEINE SULFATE. [Suspect]
     Active Substance: CODEINE SULFATE
     Indication: PRODUCT USED FOR UNKNOWN INDICATION
     Dosage: UNK
     Route: 065

REACTIONS (23)
  - Suicidal ideation [Recovering/Resolving]
  - Depressed mood [Unknown]
  - Musculoskeletal discomfort [Unknown]
  - Insomnia [Unknown]
  - Back injury [Unknown]
  - Drug withdrawal syndrome [Unknown]
  - Loss of personal independence in daily activities [Unknown]
  - Dysentery [Unknown]
  - Weight decreased [Unknown]
  - Accident [Unknown]
  - Blood pressure abnormal [Unknown]
  - Back pain [Unknown]
  - Pain in extremity [Unknown]
  - Malignant palate neoplasm [Recovered/Resolved]
  - Feeding disorder [Unknown]
  - Neck pain [Unknown]
  - Substance use [Unknown]
  - Hyperacusis [Unknown]
  - Gait inability [Unknown]
  - Frostbite [Unknown]
  - Condition aggravated [Unknown]
  - Waist circumference decreased [Unknown]
  - Crying [Unknown]
